FAERS Safety Report 5202400-9 (Version None)
Quarter: 2006Q4

REPORT INFORMATION
  Report Type: 
  Country: None (occurrence: None)
  Receive Date: 20061012
  Receipt Date: 20060810
  Transmission Date: 20070319
  Serious: No
  Sender: FDA-Public Use
  Company Number: 2006S1000154

PATIENT
  Sex: Female

DRUGS (1)
  1. CUBICIN [Suspect]

REACTIONS (4)
  - AMNESIA [None]
  - DIZZINESS [None]
  - NAUSEA [None]
  - VOMITING [None]
